FAERS Safety Report 23677514 (Version 1)
Quarter: 2024Q1

REPORT INFORMATION
  Report Type: Spontaneous
  Country: US (occurrence: US)
  Receive Date: 20240327
  Receipt Date: 20240327
  Transmission Date: 20240409
  Serious: No
  Sender: FDA-Public Use
  Company Number: US-ELI_LILLY_AND_COMPANY-US202403015766

PATIENT
  Age: 60 Year
  Sex: Male

DRUGS (1)
  1. HUMALOG KWIKPEN [Suspect]
     Active Substance: INSULIN LISPRO
     Indication: Product used for unknown indication
     Dosage: 5 U, UNKNOWN (PLUS 9 UNITS CORRECTION DOSE)
     Route: 065
     Dates: start: 2020

REACTIONS (2)
  - Blood glucose increased [Unknown]
  - Accidental underdose [Unknown]
